FAERS Safety Report 19905887 (Version 7)
Quarter: 2022Q4

REPORT INFORMATION
  Report Type: Spontaneous
  Country: JP (occurrence: JP)
  Receive Date: 20210930
  Receipt Date: 20221208
  Transmission Date: 20230112
  Serious: Yes (Hospitalization, Other)
  Sender: FDA-Public Use
  Company Number: NVSJ2021JP014357

PATIENT
  Age: 10 Year
  Sex: Male
  Weight: 41 kg

DRUGS (10)
  1. NEORAL [Suspect]
     Active Substance: CYCLOSPORINE
     Indication: Nephrotic syndrome
     Dosage: 5 MG/KG
     Route: 048
     Dates: start: 20210909, end: 20210918
  2. NEORAL [Suspect]
     Active Substance: CYCLOSPORINE
     Dosage: 200 MG
     Route: 048
     Dates: start: 20210913
  3. NEORAL [Suspect]
     Active Substance: CYCLOSPORINE
     Dosage: 250 MG
     Route: 048
     Dates: start: 20210918
  4. NEORAL [Suspect]
     Active Substance: CYCLOSPORINE
     Dosage: 125 MG, BID
     Route: 048
     Dates: start: 20210919, end: 20210920
  5. NEORAL [Suspect]
     Active Substance: CYCLOSPORINE
     Dosage: 200 MG
     Route: 048
     Dates: start: 20211102
  6. PREDONINE [Suspect]
     Active Substance: PREDNISOLONE
     Indication: Nephrotic syndrome
     Dosage: 15 MG, BID
     Route: 048
     Dates: start: 20210729
  7. SOLU-MEDROL [Suspect]
     Active Substance: METHYLPREDNISOLONE SODIUM SUCCINATE
     Indication: Nephrotic syndrome
     Dosage: 1000 MG, QD
     Route: 041
     Dates: start: 20210916, end: 20210918
  8. ENALAPRIL MALEATE [Concomitant]
     Active Substance: ENALAPRIL MALEATE
     Indication: Nephrotic syndrome
     Dosage: 5 MG, 2.5 MG
     Route: 048
     Dates: start: 20210727
  9. REBAMIPIDE [Concomitant]
     Active Substance: REBAMIPIDE
     Indication: Product used for unknown indication
     Dosage: UNK
     Route: 065
     Dates: start: 20210729
  10. HEPARIN SODIUM [Concomitant]
     Active Substance: HEPARIN SODIUM
     Indication: Product used for unknown indication
     Dosage: 5000 UNIT
     Route: 065
     Dates: start: 20210916, end: 20210918

REACTIONS (14)
  - Posterior reversible encephalopathy syndrome [Recovered/Resolved]
  - Headache [Recovered/Resolved]
  - Nausea [Recovered/Resolved]
  - Seizure [Recovered/Resolved]
  - Depressed level of consciousness [Recovered/Resolved]
  - Hallucination [Unknown]
  - Blood pressure increased [Recovered/Resolved]
  - Hypoalbuminaemia [Unknown]
  - Proteinuria [Unknown]
  - Dehydration [Unknown]
  - Oxygen saturation decreased [Unknown]
  - Immunosuppressant drug level increased [Recovering/Resolving]
  - Hypertension [Unknown]
  - Drug ineffective [Unknown]

NARRATIVE: CASE EVENT DATE: 20210920
